FAERS Safety Report 10612403 (Version 1)
Quarter: 2014Q4

REPORT INFORMATION
  Report Type: Spontaneous
  Country: IT (occurrence: IT)
  Receive Date: 20141127
  Receipt Date: 20141127
  Transmission Date: 20150529
  Serious: Yes (Other)
  Sender: FDA-Public Use
  Company Number: IT-ACCORD-027271

PATIENT
  Age: 69 Year
  Sex: Female

DRUGS (2)
  1. ACCORD FLUOROURACIL [Suspect]
     Active Substance: FLUOROURACIL
     Indication: COLON CANCER METASTATIC
     Dosage: LAST DOSE ADMINISTRATION ON: 21-JUL-2014
     Route: 040
     Dates: start: 20131118
  2. AVASTIN [Suspect]
     Active Substance: BEVACIZUMAB
     Indication: COLON CANCER METASTATIC
     Dosage: STRENGTH: 400 MG, EXPIRE DATE: 30-JUN-2015
     Route: 041
     Dates: start: 20131118, end: 20140218

REACTIONS (1)
  - Deep vein thrombosis [Recovered/Resolved]

NARRATIVE: CASE EVENT DATE: 20140218
